FAERS Safety Report 5267672-3 (Version None)
Quarter: 2007Q1

REPORT INFORMATION
  Report Type: 
  Country: None (occurrence: None)
  Receive Date: 20070316
  Receipt Date: 20070307
  Transmission Date: 20070707
  Serious: Yes (Death, Life-Threatening, Other)
  Sender: FDA-Public Use
  Company Number: PT-PFIZER INC-2007005324

PATIENT
  Age: 14 Year
  Sex: Female

DRUGS (1)
  1. CYTOTEC [Suspect]
     Indication: ABORTION
     Route: 048
     Dates: start: 20050101, end: 20050101

REACTIONS (8)
  - ABDOMINAL SYMPTOM [None]
  - CARDIAC ARREST [None]
  - GASTROINTESTINAL NECROSIS [None]
  - HAEMODYNAMIC INSTABILITY [None]
  - MULTI-ORGAN FAILURE [None]
  - OESOPHAGEAL DISORDER [None]
  - OVERDOSE [None]
  - UPPER GASTROINTESTINAL HAEMORRHAGE [None]
